FAERS Safety Report 8487572-5 (Version None)
Quarter: 2012Q3

REPORT INFORMATION
  Report Type: 
  Country: None (occurrence: None)
  Receive Date: 20120705
  Receipt Date: 20120621
  Transmission Date: 20120928
  Serious: No
  Sender: FDA-Public Use
  Company Number: US-JNJFOC-20120611071

PATIENT
  Sex: Female
  Weight: 92.08 kg

DRUGS (9)
  1. LISINOPRIL [Concomitant]
     Indication: BLOOD PRESSURE
     Route: 048
  2. DURAGESIC-100 [Suspect]
     Indication: PAIN
     Route: 062
     Dates: start: 20120101
  3. REGLAN [Concomitant]
     Indication: GASTRIC DISORDER
     Route: 048
  4. ZOLOFT [Concomitant]
     Indication: PRODUCT USED FOR UNKNOWN INDICATION
     Route: 048
  5. PROTONIX [Concomitant]
     Indication: GASTROOESOPHAGEAL REFLUX DISEASE
     Route: 048
  6. ASPIRIN [Concomitant]
     Indication: GENERAL PHYSICAL CONDITION
     Route: 048
  7. CALAN [Concomitant]
     Indication: BLOOD PRESSURE
     Route: 048
  8. SAVELLA [Concomitant]
     Indication: FIBROMYALGIA
     Route: 048
     Dates: start: 20110101
  9. CYCLOBENZAPRINE [Concomitant]
     Indication: FIBROMYALGIA
     Route: 048

REACTIONS (2)
  - WRONG TECHNIQUE IN DRUG USAGE PROCESS [None]
  - PRODUCT QUALITY ISSUE [None]
